FAERS Safety Report 21363492 (Version 5)
Quarter: 2022Q4

REPORT INFORMATION
  Report Type: Spontaneous
  Country: US (occurrence: US)
  Receive Date: 20220922
  Receipt Date: 20221015
  Transmission Date: 20230112
  Serious: Yes (Hospitalization)
  Sender: FDA-Public Use
  Company Number: US-UNITED THERAPEUTICS-UNT-2022-020450

PATIENT
  Sex: Female
  Weight: 52.608 kg

DRUGS (2)
  1. REMODULIN [Suspect]
     Active Substance: TREPROSTINIL
     Indication: Pulmonary arterial hypertension
     Dosage: UNK, CONTINUING
     Route: 041
     Dates: start: 20121218
  2. REMODULIN [Suspect]
     Active Substance: TREPROSTINIL
     Dosage: 0.058 ?G/KG, CONTINUING
     Route: 041

REACTIONS (9)
  - Device failure [Recovered/Resolved]
  - Arthritis [Unknown]
  - Limb discomfort [Unknown]
  - Nervousness [Unknown]
  - Malaise [Unknown]
  - Device power source issue [Recovered/Resolved]
  - Device occlusion [Recovered/Resolved]
  - Device infusion issue [Recovered/Resolved]
  - Device issue [Unknown]

NARRATIVE: CASE EVENT DATE: 20220101
